FAERS Safety Report 7141765-8 (Version None)
Quarter: 2010Q4

REPORT INFORMATION
  Report Type: 
  Country: None (occurrence: None)
  Receive Date: 20101207
  Receipt Date: 20101129
  Transmission Date: 20110411
  Serious: Yes (Hospitalization)
  Sender: FDA-Public Use
  Company Number: US-NOVOPROD-319278

PATIENT
  Sex: Female
  Weight: 108.84 kg

DRUGS (3)
  1. VICTOZA [Suspect]
     Indication: TYPE 2 DIABETES MELLITUS
     Dosage: 0.6 MG, UNK
     Route: 058
     Dates: start: 20100920
  2. VICTOZA [Suspect]
     Dosage: 1.2 UNK, UNK
     Route: 058
  3. VICTOZA [Suspect]
     Dosage: 1.8 MG, UNK
     Route: 058
     Dates: end: 20101105

REACTIONS (1)
  - PANCREATITIS ACUTE [None]
